FAERS Safety Report 23735318 (Version 3)
Quarter: 2024Q3

REPORT INFORMATION
  Report Type: Spontaneous
  Country: JP (occurrence: JP)
  Receive Date: 20240412
  Receipt Date: 20240930
  Transmission Date: 20241016
  Serious: Yes (Hospitalization, Other)
  Sender: MERCK
  Company Number: JP-MSD-M2024-13629

PATIENT
  Age: 63 Year

DRUGS (1)
  1. KEYTRUDA [Suspect]
     Active Substance: PEMBROLIZUMAB
     Indication: Renal cell carcinoma stage III
     Dosage: 200 MILLIGRAM, Q3W
     Route: 041
     Dates: start: 20230725, end: 202312

REACTIONS (4)
  - Malignant neoplasm progression [Unknown]
  - Illness [Unknown]
  - Immune-mediated hypothyroidism [Unknown]
  - Dissociative amnesia [Unknown]

NARRATIVE: CASE EVENT DATE: 20230101
